FAERS Safety Report 14177252 (Version 1)
Quarter: 2017Q4

REPORT INFORMATION
  Report Type: Spontaneous
  Country: US (occurrence: US)
  Receive Date: 20171110
  Receipt Date: 20171110
  Transmission Date: 20180321
  Serious: No
  Sender: FDA-Public Use
  Company Number: US-PFIZER INC-2017483993

PATIENT
  Age: 15 Year
  Sex: Male
  Weight: 34.2 kg

DRUGS (7)
  1. GENOTROPIN [Suspect]
     Active Substance: SOMATROPIN
     Indication: BODY HEIGHT BELOW NORMAL
     Dosage: 1.6 MG, DAILY
     Dates: start: 2015, end: 20171104
  2. HYDROXYZINE [Concomitant]
     Active Substance: HYDROXYZINE HYDROCHLORIDE
     Indication: SLEEP DISORDER
     Dosage: 25 MG, DAILY (25MG ONE TABLET EACH BEDTIME)
     Route: 048
     Dates: start: 2008
  3. OXYBUTYNIN. [Concomitant]
     Active Substance: OXYBUTYNIN CHLORIDE
     Indication: BLADDER DISORDER
     Dosage: 5 MG, DAILY (5MG ONE TABLET EACH MORNING)
     Route: 048
  4. DESMOPRESSIN [Concomitant]
     Active Substance: DESMOPRESSIN
     Indication: BLADDER DISORDER
     Dosage: 0.4 MG, DAILY (0.2MG TWO TABLETS EACH BEDTIME)
     Route: 048
  5. CLONIDINE. [Concomitant]
     Active Substance: CLONIDINE
     Indication: SLEEP DISORDER
     Dosage: 0.2 MG, DAILY (0.2MG ONE TABLET EACH BEDTIME)
     Route: 048
  6. LETROZOLE. [Concomitant]
     Active Substance: LETROZOLE
     Indication: GROWTH FAILURE
     Dosage: 2.5 MG, 1X/DAY (2.5MG ONE TABLET ONCE A DAY)
     Route: 048
     Dates: start: 2016
  7. RANITIDINE. [Concomitant]
     Active Substance: RANITIDINE
     Indication: ABDOMINAL DISCOMFORT
     Dosage: 150 MG, 2X/DAY (150MG ONE TABLET TWICE A DAY)
     Route: 048
     Dates: start: 2008

REACTIONS (2)
  - Sinusitis [Recovering/Resolving]
  - Drug dose omission [Unknown]

NARRATIVE: CASE EVENT DATE: 20171105
